FAERS Safety Report 10053472 (Version 2)
Quarter: 2014Q2

REPORT INFORMATION
  Report Type: Spontaneous
  Country: JP (occurrence: JP)
  Receive Date: 20140402
  Receipt Date: 20140402
  Transmission Date: 20141212
  Serious: Yes (Hospitalization)
  Sender: FDA-Public Use
  Company Number: PHHY2014JP024393

PATIENT
  Age: 68 Year
  Sex: Male

DRUGS (2)
  1. NEORAL [Suspect]
     Indication: INTERSTITIAL LUNG DISEASE
     Dosage: 150 MG, DAILY
     Route: 048
     Dates: start: 20130926
  2. NEORAL [Suspect]
     Indication: OFF LABEL USE

REACTIONS (3)
  - Inflammation of wound [Unknown]
  - Hernia [Recovering/Resolving]
  - Abdominal discomfort [Recovering/Resolving]
